FAERS Safety Report 8523182-9 (Version None)
Quarter: 2012Q3

REPORT INFORMATION
  Report Type: 
  Country: None (occurrence: None)
  Receive Date: 20120709
  Receipt Date: 20120621
  Transmission Date: 20120928
  Serious: Yes (Other)
  Sender: FDA-Public Use
  Company Number: 2012P1043850

PATIENT
  Age: 34 Year
  Sex: Female

DRUGS (1)
  1. LAMOTRIGINE [Suspect]
     Indication: BIPOLAR DISORDER
     Dosage: ;PO
     Route: 048
     Dates: start: 20120501, end: 20120619

REACTIONS (6)
  - EAR PAIN [None]
  - VIRAL INFECTION [None]
  - GLOSSODYNIA [None]
  - VIITH NERVE PARALYSIS [None]
  - HYPOAESTHESIA ORAL [None]
  - LYMPHADENOPATHY [None]
